FAERS Safety Report 25347842 (Version 1)
Quarter: 2025Q2

REPORT INFORMATION
  Report Type: Report from Study
  Country: US (occurrence: US)
  Receive Date: 20250522
  Receipt Date: 20250522
  Transmission Date: 20250717
  Serious: Yes (Other)
  Sender: ALEXION PHARMACEUTICALS
  Company Number: US-ASTRAZENECA-202505USA017507US

PATIENT

DRUGS (1)
  1. OLAPARIB [Suspect]
     Active Substance: OLAPARIB
     Indication: Ovarian cancer
     Dosage: 300 MILLIGRAM, BID

REACTIONS (9)
  - Cancer in remission [Unknown]
  - Therapy cessation [Unknown]
  - Nausea [Unknown]
  - Dizziness [Unknown]
  - Decreased appetite [Unknown]
  - Red blood cell count decreased [Unknown]
  - White blood cell count decreased [Unknown]
  - Platelet count decreased [Unknown]
  - Renal impairment [Unknown]
